FAERS Safety Report 5137204-9 (Version None)
Quarter: 2006Q4

REPORT INFORMATION
  Report Type: 
  Country: None (occurrence: None)
  Receive Date: 20061030
  Receipt Date: 20050915
  Transmission Date: 20070319
  Serious: No
  Sender: FDA-Public Use
  Company Number: US-GLAXOSMITHKLINE-A0574427A

PATIENT
  Age: 85 Year
  Sex: Female

DRUGS (6)
  1. ADVAIR HFA [Suspect]
     Indication: DRUG USE FOR UNKNOWN INDICATION
     Dosage: 1PUFF TWICE PER DAY
     Route: 055
     Dates: start: 20041001
  2. SYNTHROID [Concomitant]
     Dosage: 1TAB PER DAY
     Route: 048
     Dates: start: 20031101
  3. EFFEXOR XR [Concomitant]
     Dosage: 1CAP PER DAY
     Route: 048
     Dates: start: 20041101
  4. SINGULAIR [Concomitant]
     Dosage: 1TAB PER DAY
     Route: 048
     Dates: start: 20031101
  5. BENICAR [Concomitant]
     Dosage: 1TAB PER DAY
     Route: 048
     Dates: start: 20031201
  6. XANAX [Concomitant]
     Route: 048
     Dates: start: 20031101

REACTIONS (2)
  - ACCIDENTAL OVERDOSE [None]
  - PHARMACEUTICAL PRODUCT COMPLAINT [None]
